FAERS Safety Report 18258457 (Version 1)
Quarter: 2020Q3

REPORT INFORMATION
  Report Type: Other
  Country: US (occurrence: US)
  Receive Date: 20200911
  Receipt Date: 20200911
  Transmission Date: 20201103
  Serious: No
  Sender: FDA-Public Use
  Company Number: US-LEADIANT BIOSCIENCES INC-2019STPI000621

PATIENT
  Sex: Female

DRUGS (2)
  1. APAP/CODEINE [CODEINE PHOSPHATE;PARACETAMOL] [Concomitant]
  2. MATULANE [Suspect]
     Active Substance: PROCARBAZINE HYDROCHLORIDE
     Indication: BRAIN NEOPLASM MALIGNANT
     Dosage: 2 CAPSULES DAILY ON DAYS 8?21 OF EACH 42 DAY CYCLE
     Route: 048
     Dates: start: 20191105

REACTIONS (1)
  - Nausea [Not Recovered/Not Resolved]
